FAERS Safety Report 8057088-9 (Version None)
Quarter: 2012Q1

REPORT INFORMATION
  Report Type: 
  Country: None (occurrence: None)
  Receive Date: 20120119
  Receipt Date: 20120117
  Transmission Date: 20120608
  Serious: Yes (Death, Hospitalization)
  Sender: FDA-Public Use
  Company Number: US-CELGENEUS-163-21880-11110560

PATIENT
  Sex: Female
  Weight: 46.308 kg

DRUGS (14)
  1. AMLODIPINE [Concomitant]
     Dosage: 10 MILLIGRAM
     Route: 065
  2. ASPIRIN [Concomitant]
     Route: 065
  3. TAMOXIFEN CITRATE [Concomitant]
     Indication: BREAST CANCER
     Dosage: 20 MILLIGRAM
     Route: 065
  4. VELCADE [Concomitant]
     Route: 065
  5. REVLIMID [Suspect]
     Indication: MULTIPLE MYELOMA
     Dosage: 10 MILLIGRAM
     Route: 048
     Dates: start: 20110101
  6. ASMANEX TWISTHALE [Concomitant]
     Dosage: 220 MICROGRAM
     Route: 065
  7. FAMOTIDINE [Concomitant]
     Dosage: 20 MILLIGRAM
     Route: 065
  8. ACYCLOVIR [Concomitant]
     Route: 065
  9. SPIRIVA [Concomitant]
     Dosage: 18 MICROGRAM
     Route: 065
  10. CALCIUM WITH VITAMIN D [Concomitant]
     Route: 065
  11. REVLIMID [Suspect]
     Dosage: 15 MILLIGRAM
     Route: 048
     Dates: start: 20110601, end: 20111010
  12. CITALOPRAM [Concomitant]
     Dosage: 20 MILLIGRAM
     Route: 065
  13. PRAVASTATIN [Concomitant]
     Dosage: 40 MILLIGRAM
     Route: 065
  14. DEXAMETHASONE TAB [Concomitant]
     Dosage: 4 MILLIGRAM
     Route: 065

REACTIONS (2)
  - CARDIAC ARREST [None]
  - SMALL INTESTINAL OBSTRUCTION [None]
